FAERS Safety Report 18176796 (Version 3)
Quarter: 2020Q4

REPORT INFORMATION
  Report Type: Spontaneous
  Country: JP (occurrence: JP)
  Receive Date: 20200820
  Receipt Date: 20201007
  Transmission Date: 20210113
  Serious: Yes (Death, Hospitalization, Other)
  Sender: FDA-Public Use
  Company Number: JP-DSJP-DSJ-2020-123165

PATIENT
  Age: 96 Year
  Sex: Female
  Weight: 50 kg

DRUGS (2)
  1. VERAPAMIL                          /00014302/ [Concomitant]
     Active Substance: VERAPAMIL HYDROCHLORIDE
     Dosage: 1 DF, BID
     Route: 048
  2. LIXIANA OD TABLETS 30MG [Suspect]
     Active Substance: EDOXABAN TOSYLATE
     Indication: ATRIAL FIBRILLATION
     Dosage: 30 MG, QD
     Route: 048

REACTIONS (4)
  - Renal failure [Fatal]
  - Metabolic acidosis [Fatal]
  - Septic shock [Unknown]
  - Cardiac failure congestive [Unknown]
